FAERS Safety Report 8279557 (Version 2)
Quarter: 2012Q4

REPORT INFORMATION
  Report Type: 
  Country: US (occurrence: US)
  Receive Date: 20111208
  Receipt Date: 20120926
  Transmission Date: 20130627
  Serious: Yes (Other)
  Sender: FDA-Public Use
  Company Number: US-US-EMD SERONO, INC.-7099031

PATIENT
  Age: 55 None
  Sex: Female

DRUGS (2)
  1. REBIF [Suspect]
     Indication: MULTIPLE SCLEROSIS
     Route: 058
     Dates: start: 20100205
  2. LANTUS [Concomitant]
     Indication: DIABETES MELLITUS

REACTIONS (5)
  - Nephrolithiasis [Recovered/Resolved]
  - Skin discolouration [Recovering/Resolving]
  - Bladder spasm [Unknown]
  - Gait disturbance [Unknown]
  - Asthenia [Unknown]
